FAERS Safety Report 8765943 (Version 1)
Quarter: 2012Q4

REPORT INFORMATION
  Report Type: 
  Country: US (occurrence: US)
  Receive Date: 20120904
  Receipt Date: 20120904
  Transmission Date: 20130627
  Serious: Yes (Other)
  Sender: FDA-Public Use
  Company Number: US-WATSON-2012-15241

PATIENT
  Age: 61 Year
  Sex: Female

DRUGS (1)
  1. METRONIDAZOLE [Suspect]
     Indication: HYPERAMMONAEMIA
     Dosage: UNK
     Route: 065

REACTIONS (7)
  - Toxic encephalopathy [Recovered/Resolved]
  - Movement disorder [Recovered/Resolved]
  - Tremor [None]
  - Chorea [None]
  - Ataxia [None]
  - Tic [None]
  - Cerebral haemorrhage [None]
